FAERS Safety Report 9262340 (Version 1)
Quarter: 2013Q2

REPORT INFORMATION
  Report Type: Spontaneous
  Country: US (occurrence: None)
  Receive Date: 20130425
  Receipt Date: 20130425
  Transmission Date: 20140414
  Serious: Yes (Life-Threatening, Hospitalization)
  Sender: FDA-Public Use
  Company Number: None

PATIENT
  Age: 47 Year
  Sex: Female
  Weight: 97.52 kg

DRUGS (1)
  1. PENTASA [Suspect]
     Indication: CROHN^S DISEASE
     Route: 048
     Dates: start: 20130109, end: 20130424

REACTIONS (1)
  - Pneumonia [None]
